FAERS Safety Report 9574453 (Version 1)
Quarter: 2013Q4

REPORT INFORMATION
  Report Type: Spontaneous
  Country: US (occurrence: US)
  Receive Date: 20131001
  Receipt Date: 20131001
  Transmission Date: 20140711
  Serious: No
  Sender: FDA-Public Use
  Company Number: US-PURDUE-USA-2012-0084579

PATIENT
  Age: 40 Year
  Sex: Male
  Weight: 104.31 kg

DRUGS (2)
  1. BUTRANS [Suspect]
     Indication: SPINAL CORD INJURY
     Dosage: 20 MCG/HR, UNK
     Route: 062
     Dates: start: 201109
  2. BUTRANS [Suspect]
     Indication: INTERVERTEBRAL DISC DISORDER

REACTIONS (5)
  - Application site odour [Unknown]
  - Application site haemorrhage [Unknown]
  - Application site erythema [Unknown]
  - Product odour abnormal [Unknown]
  - Product quality issue [Unknown]
